FAERS Safety Report 8845379 (Version 7)
Quarter: 2014Q3

REPORT INFORMATION
  Report Type: Spontaneous
  Country: US (occurrence: US)
  Receive Date: 20121017
  Receipt Date: 20140724
  Transmission Date: 20150326
  Serious: Yes (Hospitalization, Disabling, Other)
  Sender: FDA-Public Use
  Company Number: US-009507513-1210USA005855

PATIENT
  Sex: Female
  Weight: 56.24 kg

DRUGS (4)
  1. FOSAMAX [Suspect]
     Active Substance: ALENDRONATE SODIUM
     Indication: OSTEOPENIA
     Dosage: 10 MG, UNK
     Route: 048
     Dates: start: 19951110, end: 19980327
  2. ACTONEL [Suspect]
     Active Substance: RISEDRONATE SODIUM
     Indication: OSTEOPOROSIS
     Dosage: 35 MG, UNK
     Route: 048
     Dates: start: 19980327, end: 20101002
  3. ACTONEL [Suspect]
     Active Substance: RISEDRONATE SODIUM
     Indication: OSTEOPENIA
  4. FOSAMAX [Suspect]
     Active Substance: ALENDRONATE SODIUM
     Indication: OSTEOPOROSIS

REACTIONS (41)
  - Crohn^s disease [Unknown]
  - Anxiety [Unknown]
  - Dental implantation [Unknown]
  - Haemoglobin decreased [Unknown]
  - Fall [Unknown]
  - Depression [Unknown]
  - Meniscus removal [Unknown]
  - Adverse event [Unknown]
  - Bursitis [Unknown]
  - Meniscus injury [Unknown]
  - Medical device removal [Unknown]
  - Medical device complication [Unknown]
  - Hysterectomy [Unknown]
  - Low turnover osteopathy [Unknown]
  - Endodontic procedure [Unknown]
  - Heart rate increased [Unknown]
  - Meniscus injury [Unknown]
  - Intestinal resection [Unknown]
  - Salpingo-oophorectomy bilateral [Unknown]
  - Meniscus removal [Unknown]
  - Femur fracture [Unknown]
  - Femur fracture [Unknown]
  - Musculoskeletal pain [Unknown]
  - Tooth extraction [Unknown]
  - Hypertension [Unknown]
  - Inflammatory bowel disease [Unknown]
  - Pain in extremity [Unknown]
  - Open reduction of fracture [Unknown]
  - Gastric operation [Unknown]
  - Fall [Unknown]
  - Haematocrit decreased [Unknown]
  - Open reduction of fracture [Unknown]
  - Medical device removal [Unknown]
  - Dental caries [Unknown]
  - Impaired healing [Unknown]
  - Gastrointestinal surgery [Unknown]
  - Surgery [Unknown]
  - Irritable bowel syndrome [Not Recovered/Not Resolved]
  - Anaemia [Unknown]
  - Colitis ulcerative [Unknown]
  - Osteoarthritis [Unknown]

NARRATIVE: CASE EVENT DATE: 1997
